FAERS Safety Report 5583495-X (Version None)
Quarter: 2008Q1

REPORT INFORMATION
  Report Type: 
  Country: None (occurrence: None)
  Receive Date: 20080107
  Receipt Date: 20071212
  Transmission Date: 20080703
  Serious: No
  Sender: FDA-Public Use
  Company Number: US-BOEHRINGER INGELHEIM PHARMACEUTICALS, INC.-2007-BP-24452BP

PATIENT
  Age: 51 Year
  Sex: Female

DRUGS (11)
  1. MIRAPEX [Suspect]
     Indication: RESTLESS LEGS SYNDROME
     Route: 048
     Dates: end: 20070901
  2. MIRAPEX [Suspect]
     Route: 048
  3. NEXIUM [Concomitant]
  4. ESTRADIOL [Concomitant]
     Indication: BLOOD OESTROGEN
  5. PREVACID [Concomitant]
  6. TRAZODONE HCL [Concomitant]
  7. LIDODERM [Concomitant]
     Indication: MYALGIA
  8. LIDODERM [Concomitant]
     Indication: PAIN
  9. CYMBALTA [Concomitant]
  10. REMIFEMIN [Concomitant]
  11. EXTRA STRENGTH TYLENOL [Concomitant]

REACTIONS (7)
  - EYE IRRITATION [None]
  - HYPOAESTHESIA [None]
  - INSOMNIA [None]
  - PAIN [None]
  - PAIN IN EXTREMITY [None]
  - PARAESTHESIA [None]
  - TENDERNESS [None]
